FAERS Safety Report 17556698 (Version 1)
Quarter: 2020Q1

REPORT INFORMATION
  Report Type: Spontaneous
  Country: US (occurrence: US)
  Receive Date: 20200318
  Receipt Date: 20200318
  Transmission Date: 20200409
  Serious: Yes (Other)
  Sender: FDA-Public Use
  Company Number: US-ASTRAZENECA-2020SE38120

PATIENT
  Age: 23852 Day
  Sex: Male
  Weight: 85.3 kg

DRUGS (1)
  1. BYDUREON [Suspect]
     Active Substance: EXENATIDE
     Indication: TYPE 2 DIABETES MELLITUS
     Route: 058
     Dates: start: 20200106

REACTIONS (5)
  - Injection site nodule [Not Recovered/Not Resolved]
  - Injection site extravasation [Recovered/Resolved]
  - Abdominal hernia [Unknown]
  - Injection site pruritus [Not Recovered/Not Resolved]
  - Needle issue [Unknown]

NARRATIVE: CASE EVENT DATE: 20200106
